FAERS Safety Report 4720628-9 (Version None)
Quarter: 2005Q3

REPORT INFORMATION
  Report Type: 
  Country: None (occurrence: None)
  Receive Date: 20050719
  Receipt Date: 20050706
  Transmission Date: 20060218
  Serious: Yes (Hospitalization)
  Sender: FDA-Public Use
  Company Number: 188563

PATIENT
  Age: 43 Year
  Sex: Female

DRUGS (10)
  1. AVONEX [Suspect]
     Indication: MULTIPLE SCLEROSIS
     Dosage: 30 UG;QW; IM
     Route: 030
     Dates: start: 19980101, end: 20031005
  2. BACLOFEN [Concomitant]
  3. NEURONTIN [Concomitant]
  4. SERZONE [Concomitant]
  5. ZOLOFT [Concomitant]
  6. PRAVACHOL [Concomitant]
  7. TOPROL-XL [Concomitant]
  8. LASIX [Concomitant]
  9. POTASSIUM CHLORIDE [Concomitant]
  10. NEXIUM [Concomitant]

REACTIONS (14)
  - ABASIA [None]
  - ASTHENIA [None]
  - BALANCE DISORDER [None]
  - CHEST PAIN [None]
  - DYSPNOEA [None]
  - ELECTROCARDIOGRAM T WAVE ABNORMAL [None]
  - HYPOAESTHESIA [None]
  - MULTIPLE SCLEROSIS [None]
  - OEDEMA [None]
  - OESOPHAGEAL ULCER [None]
  - PARAESTHESIA [None]
  - RESPIRATORY ARREST [None]
  - RESPIRATORY DISORDER [None]
  - STRESS [None]
